FAERS Safety Report 10160689 (Version 1)
Quarter: 2014Q2

REPORT INFORMATION
  Report Type: Spontaneous
  Country: DE (occurrence: DE)
  Receive Date: 20140508
  Receipt Date: 20140508
  Transmission Date: 20141212
  Serious: Yes (Other)
  Sender: FDA-Public Use
  Company Number: GXKR2014DE001800

PATIENT
  Age: 52 Year
  Sex: Female

DRUGS (2)
  1. CLOZAPIN 1A PHARMA [Suspect]
     Indication: SCHIZOPHRENIA
     Dosage: DAILY DOSE: 50 TO 75 MG
     Route: 048
  2. METOHEXAL SUCC [Concomitant]
     Dosage: UNK MG, UNK

REACTIONS (3)
  - Apnoeic attack [Unknown]
  - Dyspnoea [Unknown]
  - Tachycardia [Unknown]
